FAERS Safety Report 5135928-0 (Version None)
Quarter: 2006Q4

REPORT INFORMATION
  Report Type: 
  Country: None (occurrence: None)
  Receive Date: 20061020
  Receipt Date: 20061005
  Transmission Date: 20070319
  Serious: Yes (Hospitalization, Disabling)
  Sender: FDA-Public Use
  Company Number: 111150ISR

PATIENT
  Age: 90 Year
  Sex: Male

DRUGS (2)
  1. SIMVASTATIN [Suspect]
     Dosage: (10 MG) ORAL
     Route: 048
  2. ACETYLSALICYLIC ACID SRT [Concomitant]

REACTIONS (2)
  - PROSTATIC HAEMORRHAGE [None]
  - URINARY INCONTINENCE [None]
